FAERS Safety Report 7944503-1 (Version None)
Quarter: 2011Q4

REPORT INFORMATION
  Report Type: 
  Country: None (occurrence: None)
  Receive Date: 20111114
  Receipt Date: 20110822
  Transmission Date: 20120403
  Serious: No
  Sender: FDA-Public Use
  Company Number: 1000023077

PATIENT
  Age: 47 Year
  Sex: Female

DRUGS (6)
  1. SAVELLA [Suspect]
     Indication: FIBROMYALGIA
     Dosage: 75 MG, ORAL; 25 MG BID (25 MG, 2 IN 1 D), ORAL
     Route: 048
     Dates: start: 20110801, end: 20110801
  2. PREVACID (LANSOPRAZOLE) (LANSOPRAZOLE) [Concomitant]
  3. SAVELLA [Suspect]
     Indication: FIBROMYALGIA
     Dosage: 50 MG BID (50 MG, 2 IN 1 D), ORAL
     Route: 048
     Dates: start: 20110601, end: 20110801
  4. SAVELLA [Suspect]
     Indication: FIBROMYALGIA
     Dosage: 12.5 MG (12.5 MG, 1 IN 1 D), ORAL ; 25 MG BID (12.5 MG, 2 IN 1 D), ORAL; 75 MG, ORAL
     Route: 048
     Dates: start: 20110601, end: 20110601
  5. VITAMIN D (VITAMIN D) (VITAMIN D) [Concomitant]
  6. HYDROCODONE (HYDROCODONE) (HYDROCODONE) [Concomitant]

REACTIONS (7)
  - MENSTRUAL DISORDER [None]
  - INSOMNIA [None]
  - CONSTIPATION [None]
  - NAUSEA [None]
  - HEADACHE [None]
  - HOT FLUSH [None]
  - SKIN HYPERPIGMENTATION [None]
